FAERS Safety Report 10066600 (Version 1)
Quarter: 2014Q2

REPORT INFORMATION
  Report Type: Report from Study
  Country: BR (occurrence: BR)
  Receive Date: 20140408
  Receipt Date: 20140408
  Transmission Date: 20141212
  Serious: Yes (Hospitalization)
  Sender: FDA-Public Use
  Company Number: PHHY2014BR040669

PATIENT
  Sex: Male
  Weight: 42.8 kg

DRUGS (11)
  1. EXELON [Suspect]
     Indication: DEMENTIA ALZHEIMER^S TYPE
     Dosage: 6 MG, BID
     Route: 048
     Dates: end: 201204
  2. OMEPRAZOLE [Suspect]
     Indication: GASTRITIS
     Dosage: 20 MG, BID
  3. OMEPRAZOLE [Suspect]
     Indication: OESOPHAGITIS
  4. APO-FOLIC ACID [Suspect]
     Dosage: 5 MG, QD
  5. ERYTHROPOIETIN [Suspect]
     Indication: ANAEMIA
     Dosage: 1 DF, QW3
     Dates: start: 201302
  6. NORIPURUM [Suspect]
     Indication: ANAEMIA
     Dosage: 1 DF EVERY 15 DAYS
     Dates: start: 201302
  7. VITAMIN C [Concomitant]
     Dosage: 500 MG, UNK
  8. CARVEDILOL [Concomitant]
     Dosage: 3.125 MG, UNK
  9. B COMPLEX [Concomitant]
     Dosage: UNK UKN, UNK
  10. AAS [Concomitant]
     Indication: CARDIOVASCULAR DISORDER
     Dosage: UNK UKN, UNK
  11. DORMEX//BROTIZOLAM [Concomitant]
     Dosage: UNK UKN, UNK

REACTIONS (3)
  - Mesenteric vascular occlusion [Not Recovered/Not Resolved]
  - Asthenia [Not Recovered/Not Resolved]
  - Vomiting [Not Recovered/Not Resolved]
